FAERS Safety Report 6293442-3 (Version None)
Quarter: 2009Q3

REPORT INFORMATION
  Report Type: 
  Country: None (occurrence: None)
  Receive Date: 20090803
  Receipt Date: 20090728
  Transmission Date: 20100115
  Serious: Yes (Hospitalization)
  Sender: FDA-Public Use
  Company Number: US-BIOGENIDEC-2009BI023283

PATIENT
  Age: 50 Year
  Sex: Female

DRUGS (14)
  1. TYSABRI [Suspect]
     Indication: MULTIPLE SCLEROSIS
     Route: 042
     Dates: start: 20080521
  2. ZYRTEC [Concomitant]
     Route: 048
  3. CYCLOBENZAPRINE HCL [Concomitant]
     Route: 048
  4. DILTIAZEM [Concomitant]
     Route: 048
  5. ADVAIR DISKUS 100/50 [Concomitant]
     Route: 055
  6. NEURONTIN [Concomitant]
     Route: 048
  7. HYZAAR [Concomitant]
     Route: 048
  8. NITROGLYCERIN [Concomitant]
  9. PRILOSEC [Concomitant]
     Route: 048
  10. POTASSIUM CHLORIDE [Concomitant]
     Route: 048
  11. DETROL LA [Concomitant]
     Route: 048
  12. ULTRAM [Concomitant]
     Route: 048
  13. EFFEXOR [Concomitant]
     Route: 048
  14. AMBIEN CR [Concomitant]
     Route: 048

REACTIONS (2)
  - METASTASES TO LIVER [None]
  - PANCREATIC CARCINOMA [None]
